FAERS Safety Report 5858625-2 (Version None)
Quarter: 2008Q3

REPORT INFORMATION
  Report Type: 
  Country: None (occurrence: None)
  Receive Date: 20080826
  Receipt Date: 20080702
  Transmission Date: 20090109
  Serious: Yes (Other)
  Sender: FDA-Public Use
  Company Number: US-PURDUE-USA_2008_0034163

PATIENT
  Age: 48 Year
  Sex: Male
  Weight: 102 kg

DRUGS (1)
  1. OXYCONTIN [Suspect]
     Indication: PAIN
     Dosage: 60 MG, SEE TEXT

REACTIONS (18)
  - ANTISOCIAL BEHAVIOUR [None]
  - ARTHRALGIA [None]
  - BONE PAIN [None]
  - CARDIAC DISORDER [None]
  - CONSTIPATION [None]
  - DRUG DEPENDENCE [None]
  - DYSPNOEA [None]
  - EYE DISCHARGE [None]
  - MUSCLE SPASMS [None]
  - MUSCLE TWITCHING [None]
  - RESPIRATORY DISORDER [None]
  - RESPIRATORY FAILURE [None]
  - RHINORRHOEA [None]
  - SALIVARY HYPERSECRETION [None]
  - SLEEP DISORDER [None]
  - SUICIDAL IDEATION [None]
  - TREMOR [None]
  - VISUAL IMPAIRMENT [None]
